FAERS Safety Report 19991159 (Version 1)
Quarter: 2021Q4

REPORT INFORMATION
  Report Type: Spontaneous
  Country: US (occurrence: US)
  Receive Date: 20211025
  Receipt Date: 20211025
  Transmission Date: 20220304
  Serious: Yes (Other)
  Sender: FDA-Public Use
  Company Number: US-SA-SAC20211020000934

PATIENT
  Age: 70 Year
  Sex: Male

DRUGS (1)
  1. ZANTAC [Suspect]
     Active Substance: RANITIDINE HYDROCHLORIDE
     Indication: Dyspepsia
     Dosage: DOSE AND FREQUENCY: OTHER
     Dates: start: 199301, end: 201401

REACTIONS (4)
  - Renal cancer stage IV [Unknown]
  - Hepatic cancer stage IV [Unknown]
  - Gastric cancer stage IV [Unknown]
  - Spinal cord neoplasm [Unknown]

NARRATIVE: CASE EVENT DATE: 20191101
